FAERS Safety Report 6646792-2 (Version None)
Quarter: 2010Q1

REPORT INFORMATION
  Report Type: 
  Country: None (occurrence: None)
  Receive Date: 20100323
  Receipt Date: 20100318
  Transmission Date: 20100710
  Serious: Yes (Other)
  Sender: FDA-Public Use
  Company Number: US-MERCK-1003USA02787

PATIENT
  Age: 75 Year
  Sex: Female

DRUGS (3)
  1. FOSAMAX [Suspect]
     Route: 048
  2. ACTONEL [Suspect]
     Route: 065
  3. BONIVA [Suspect]
     Route: 065

REACTIONS (2)
  - ADVERSE REACTION [None]
  - ARTHROPATHY [None]
